FAERS Safety Report 14804614 (Version 3)
Quarter: 2018Q2

REPORT INFORMATION
  Report Type: Spontaneous
  Country: JP (occurrence: JP)
  Receive Date: 20180425
  Receipt Date: 20180529
  Transmission Date: 20180711
  Serious: Yes (Death, Other)
  Sender: FDA-Public Use
  Company Number: JP-BAYER-2018-075809

PATIENT

DRUGS (6)
  1. HEPARIN [Concomitant]
     Active Substance: HEPARIN SODIUM
     Indication: HABITUAL ABORTION
     Route: 064
  2. GLOBULIN N [IMMUNOGLOBULIN HUMAN NORMAL] [Concomitant]
     Route: 064
  3. BAYASPIRIN 100 MG [Suspect]
     Active Substance: ASPIRIN
     Indication: PREMATURE DELIVERY
  4. BAYASPIRIN 100 MG [Suspect]
     Active Substance: ASPIRIN
     Indication: HABITUAL ABORTION
     Route: 064
  5. HEPARIN [Concomitant]
     Active Substance: HEPARIN SODIUM
     Indication: PREMATURE DELIVERY
  6. PREDNISOLONE. [Concomitant]
     Active Substance: PREDNISOLONE
     Indication: PLATELET COUNT DECREASED
     Route: 064

REACTIONS (2)
  - Foetal death [Fatal]
  - Foetal exposure during pregnancy [None]
